FAERS Safety Report 7212055-X (Version None)
Quarter: 2010Q4

REPORT INFORMATION
  Report Type: 
  Country: None (occurrence: None)
  Receive Date: 20101228
  Receipt Date: 20101216
  Transmission Date: 20110411
  Serious: Yes (Hospitalization, Other)
  Sender: FDA-Public Use
  Company Number: 2010US004927

PATIENT
  Age: 52 Year
  Sex: Male
  Weight: 65 kg

DRUGS (6)
  1. PROGRAF [Suspect]
     Indication: RENAL AND PANCREAS TRANSPLANT
     Dosage: 3 MG, BID, ORAL
     Route: 048
     Dates: start: 20000101
  2. MYFORTIC [Suspect]
     Indication: RENAL AND PANCREAS TRANSPLANT
     Dosage: 360 MG, BID, ORAL
     Route: 048
  3. ALPRAZOLAM [Concomitant]
  4. FERROUS SULFATE (FERROUS SULFATE) TABLET [Concomitant]
  5. PREDNISONE TAB [Concomitant]
  6. VITAMIN D2 (ERGOCALCIFEROL) [Concomitant]

REACTIONS (6)
  - DEHYDRATION [None]
  - ENTEROCOCCUS TEST POSITIVE [None]
  - GASTROINTESTINAL HAEMORRHAGE [None]
  - SUBARACHNOID HAEMORRHAGE [None]
  - THROMBOCYTOPENIA [None]
  - URINE OUTPUT DECREASED [None]
